FAERS Safety Report 7955671-X (Version None)
Quarter: 2011Q4

REPORT INFORMATION
  Report Type: 
  Country: None (occurrence: None)
  Receive Date: 20111204
  Receipt Date: 20110927
  Transmission Date: 20120403
  Serious: No
  Sender: FDA-Public Use
  Company Number: US-ALLERGAN-1112802US

PATIENT
  Age: 48 Year
  Sex: Female

DRUGS (2)
  1. ACZONE [Suspect]
     Indication: ROSACEA
  2. ACZONE [Suspect]
     Indication: ECZEMA
     Dosage: 1 APPLICATION
     Route: 061
     Dates: start: 20110901

REACTIONS (1)
  - ERYTHEMA [None]
